FAERS Safety Report 7659756-7 (Version None)
Quarter: 2011Q3

REPORT INFORMATION
  Report Type: 
  Country: None (occurrence: None)
  Receive Date: 20110805
  Receipt Date: 20110729
  Transmission Date: 20111222
  Serious: Yes (Hospitalization, Disabling)
  Sender: FDA-Public Use
  Company Number: PHHY2011GB68139

PATIENT
  Age: 53 Year
  Sex: Female
  Weight: 104 kg

DRUGS (11)
  1. LANSOPRAZOLE [Concomitant]
     Indication: DYSPEPSIA
     Dosage: 15 MG, UNK
  2. PAROXETINE HCL [Concomitant]
     Indication: FLUSHING
     Dosage: 20 MG, QD
  3. FOSAMAX [Suspect]
     Indication: OSTEOPOROSIS
     Dosage: 70 MG, UNK
     Route: 048
     Dates: start: 20110317, end: 20110519
  4. ALBUTEROL [Concomitant]
     Indication: WHEEZING
  5. SIMVASTATIN [Concomitant]
     Indication: BLOOD CHOLESTEROL INCREASED
     Dosage: 40 MG, QD
  6. ASPIRIN [Concomitant]
     Indication: ANTICOAGULANT THERAPY
     Dosage: 75 MG, QD
     Route: 048
  7. CODEINE SULFATE [Concomitant]
     Indication: PAIN
     Dosage: 2 DF, QD
  8. QVAR 40 [Concomitant]
     Dosage: 1 DF, BID
  9. ACETAMINOPHEN [Concomitant]
     Dosage: 1000 MG, UNK
  10. ACETAMINOPHEN [Concomitant]
     Indication: PAIN
     Dosage: 1000 MG, UNK
  11. PERINDOPRIL [Concomitant]
     Indication: HYPERTENSION
     Dosage: 2 MG, QD

REACTIONS (1)
  - FEMORAL NECK FRACTURE [None]
